FAERS Safety Report 10646921 (Version 1)
Quarter: 2014Q4

REPORT INFORMATION
  Report Type: Spontaneous
  Country: US (occurrence: US)
  Receive Date: 20141211
  Receipt Date: 20141211
  Transmission Date: 20150529
  Serious: Yes (Hospitalization, Other)
  Sender: FDA-Public Use
  Company Number: US-BAYER-2014-180685

PATIENT
  Age: 45 Year
  Sex: Female
  Weight: 66.21 kg

DRUGS (15)
  1. YASMIN [Suspect]
     Active Substance: DROSPIRENONE\ETHINYL ESTRADIOL
  2. BACITRACIN. [Concomitant]
     Active Substance: BACITRACIN
     Dosage: UNK
     Dates: start: 20101021
  3. BACTRIM DS [Concomitant]
     Active Substance: SULFAMETHOXAZOLE\TRIMETHOPRIM
     Dosage: 1 TABLET, BID
     Route: 048
  4. ROBITUSSIN [GUAIFENESIN] [Concomitant]
     Indication: COUGH
     Dosage: 100 MG/5 ML EVERY 4 HOURS AS NEEDED
     Route: 048
  5. TRIAMCINOLONE ACETONIDE. [Concomitant]
     Active Substance: TRIAMCINOLONE ACETONIDE
     Dosage: 0.5 %, APPLY TO AFFECTED AREA 2 TIMES EACH DAY.
     Route: 061
  6. FLONASE [Concomitant]
     Active Substance: FLUTICASONE PROPIONATE
     Dosage: 50 MCG 1 SPRAY DAILY
     Route: 045
  7. BACITRACIN ZINC. [Concomitant]
     Active Substance: BACITRACIN ZINC
     Indication: RASH
     Dosage: APPLY TO AFFECTED AREA 3 TIMES EACH DAY
     Route: 061
  8. VISTARIL [Concomitant]
     Active Substance: HYDROXYZINE PAMOATE
     Indication: INSOMNIA
     Dosage: 25 MG, HS
  9. PRILOSEC [Concomitant]
     Active Substance: OMEPRAZOLE MAGNESIUM
     Dosage: 20 MG, TAKE 1 TABLET DAILY
     Route: 048
  10. FLUTICASONE [Concomitant]
     Active Substance: FLUTICASONE\FLUTICASONE PROPIONATE
     Dosage: 50 MCG
     Route: 045
     Dates: start: 20101021
  11. TYLENOL [Concomitant]
     Active Substance: ACETAMINOPHEN
     Indication: PAIN
     Dosage: 325 MG 2 TABLETS EVRY 4 HRS AS NEEDED
     Route: 048
  12. PHENERGAN [Concomitant]
     Active Substance: PROMETHAZINE HYDROCHLORIDE
  13. SULFAMETHOXAZOLE/TRIMETHOPRIM [Concomitant]
     Active Substance: SULFAMETHOXAZOLE\TRIMETHOPRIM
     Dosage: 800-160 TAB
     Dates: start: 20101021
  14. NITROGLYCERIN. [Concomitant]
     Active Substance: NITROGLYCERIN
  15. FLOVENT [Concomitant]
     Active Substance: FLUTICASONE PROPIONATE
     Indication: BRONCHITIS

REACTIONS (5)
  - Pulmonary embolism [None]
  - Thrombophlebitis superficial [None]
  - Transient ischaemic attack [Recovered/Resolved]
  - Deep vein thrombosis [None]
  - Cholelithiasis [None]

NARRATIVE: CASE EVENT DATE: 20090120
